FAERS Safety Report 18676028 (Version 2)
Quarter: 2021Q3

REPORT INFORMATION
  Report Type: Spontaneous
  Country: AU (occurrence: AU)
  Receive Date: 20201229
  Receipt Date: 20210813
  Transmission Date: 20211014
  Serious: Yes (Life-Threatening, Other)
  Sender: FDA-Public Use
  Company Number: AU-GLAXOSMITHKLINE-AU2020APC255066

PATIENT
  Age: 63 Year
  Sex: Male

DRUGS (13)
  1. DAPSONE. [Suspect]
     Active Substance: DAPSONE
     Dosage: 25 MG AT NIGHT
     Dates: start: 2015
  2. TRIAMCINOLONE [Concomitant]
     Active Substance: TRIAMCINOLONE
     Indication: XANTHOGRANULOMA
     Dosage: 10 MG/ML
     Route: 026
     Dates: start: 201710
  3. BETAMETHASONE DIPROPIONATE. [Concomitant]
     Active Substance: BETAMETHASONE DIPROPIONATE
     Indication: XANTHOGRANULOMA
     Dosage: UNK
     Route: 061
     Dates: start: 201710
  4. OMBITASVIR [Concomitant]
     Active Substance: OMBITASVIR
     Indication: PRODUCT USED FOR UNKNOWN INDICATION
     Dosage: UNK
     Dates: start: 2016
  5. DAPSONE. [Suspect]
     Active Substance: DAPSONE
     Indication: XANTHOGRANULOMA
     Dosage: 50 MG IN THE MORNING
     Dates: start: 2015
  6. HYDROXYCHLOROQUINE [Suspect]
     Active Substance: HYDROXYCHLOROQUINE
     Indication: XANTHOGRANULOMA
     Dosage: UNK
  7. HYDROXYCHLOROQUINE [Suspect]
     Active Substance: HYDROXYCHLOROQUINE
     Dosage: 400 MG, QD
     Dates: start: 201809, end: 201811
  8. PREDNISONE. [Suspect]
     Active Substance: PREDNISONE
     Indication: XANTHOGRANULOMA
     Dosage: 60 MG, QD ??FOR FOUR CONSECUTIVE DAYS/MONTH WAS TRIED FOR 5 MONTHS
     Dates: start: 201811
  9. ACITRETIN. [Suspect]
     Active Substance: ACITRETIN
     Indication: XANTHOGRANULOMA
     Dosage: UNK
  10. RITONAVIR. [Concomitant]
     Active Substance: RITONAVIR
     Indication: XANTHOGRANULOMA
     Dosage: UNK
     Dates: start: 2016
  11. MELPHALAN. [Suspect]
     Active Substance: MELPHALAN
     Indication: PRODUCT USED FOR UNKNOWN INDICATION
     Dosage: 10 MG, QD FOR FOUR CONSECUTIVE DAYS/MONTH WAS TRIED FOR 5 MONTHS
     Dates: start: 201811
  12. THALIDOMIDE [Suspect]
     Active Substance: THALIDOMIDE
     Indication: XANTHOGRANULOMA
     Dosage: 100 MG, QD
     Dates: start: 201502
  13. PARITAPREVIR [Concomitant]
     Active Substance: PARITAPREVIR
     Indication: XANTHOGRANULOMA
     Dosage: UNK
     Dates: start: 2016

REACTIONS (4)
  - Off label use [Unknown]
  - Fatigue [Unknown]
  - Drug ineffective [Unknown]
  - Adverse event [Unknown]
